FAERS Safety Report 9393878 (Version 1)
Quarter: 2013Q3

REPORT INFORMATION
  Report Type: Spontaneous
  Country: US (occurrence: US)
  Receive Date: 20130710
  Receipt Date: 20130710
  Transmission Date: 20140515
  Serious: Yes (Other)
  Sender: FDA-Public Use
  Company Number: US-UCBSA-090970

PATIENT
  Sex: Male

DRUGS (7)
  1. VIMPAT [Suspect]
     Indication: EPILEPSY
     Dosage: 400 MG
  2. VIMPAT [Suspect]
     Indication: EPILEPSY
     Dosage: INCREASES EVERY 2 MONTHS SINCE SEPTEMBER
  3. KEPPRA [Suspect]
     Indication: EPILEPSY
     Dosage: 3000 MG
  4. KEPPRA [Suspect]
     Indication: EPILEPSY
     Dosage: INCREASES EVERY 2 MONTHS
  5. DEPAKOTE [Concomitant]
     Indication: EPILEPSY
  6. DEPAKOTE [Concomitant]
     Indication: EPILEPSY
     Dosage: 3000 MG
  7. DEPAKOTE [Concomitant]
     Indication: EPILEPSY
     Dosage: INCREASES EVERY 2 MONTHS

REACTIONS (3)
  - Convulsion [Unknown]
  - Grand mal convulsion [Unknown]
  - Heart rate increased [Unknown]
